FAERS Safety Report 5789139-6 (Version None)
Quarter: 2008Q2

REPORT INFORMATION
  Report Type: 
  Country: None (occurrence: None)
  Receive Date: 20080626
  Receipt Date: 20080616
  Transmission Date: 20081010
  Serious: Yes (Death)
  Sender: FDA-Public Use
  Company Number: US-JNJFOC-20080602402

PATIENT
  Sex: Female
  Weight: 56.7 kg

DRUGS (1)
  1. RAZADYNE [Suspect]
     Indication: AMNESIA
     Route: 048

REACTIONS (2)
  - ABNORMAL DREAMS [None]
  - DEATH [None]
